FAERS Safety Report 5392320-1 (Version None)
Quarter: 2007Q3

REPORT INFORMATION
  Report Type: 
  Country: None (occurrence: None)
  Receive Date: 20070720
  Receipt Date: 20070712
  Transmission Date: 20080115
  Serious: Yes (Death)
  Sender: FDA-Public Use
  Company Number: RO-ABBOTT-07P-135-0373071-00

PATIENT
  Sex: Male
  Weight: 61 kg

DRUGS (6)
  1. KALETRA [Suspect]
     Indication: HIV INFECTION
     Dosage: 800/200
     Route: 048
     Dates: start: 20050415, end: 20070323
  2. LAMIVUDINE [Concomitant]
     Indication: HIV INFECTION
     Route: 048
     Dates: start: 20061001, end: 20070323
  3. ABACAVIR [Concomitant]
     Indication: HIV INFECTION
     Route: 048
     Dates: start: 20061001, end: 20070323
  4. TRIGLIDE [Concomitant]
     Indication: DYSLIPIDAEMIA
     Route: 048
     Dates: start: 20070116, end: 20070323
  5. DIDANOSINE [Concomitant]
     Indication: SYSTEMIC ANTIVIRAL TREATMENT
     Dates: start: 20050415, end: 20061001
  6. STAVUDINE [Concomitant]
     Indication: SYSTEMIC ANTIVIRAL TREATMENT
     Dates: start: 20050415, end: 20061001

REACTIONS (2)
  - ACUTE MYOCARDIAL INFARCTION [None]
  - DYSLIPIDAEMIA [None]
